FAERS Safety Report 5465522-3 (Version None)
Quarter: 2007Q3

REPORT INFORMATION
  Report Type: 
  Country: None (occurrence: None)
  Receive Date: 20070924
  Receipt Date: 20001219
  Transmission Date: 20080115
  Serious: Yes (Other)
  Sender: FDA-Public Use
  Company Number: FR-PFIZER INC-2006119926

PATIENT
  Age: 67 Year
  Sex: Female

DRUGS (5)
  1. CAMPTOSAR [Suspect]
     Route: 042
     Dates: start: 20000828, end: 20000916
  2. FLUOROURACIL [Suspect]
     Route: 042
     Dates: start: 20000828, end: 20000916
  3. CORTANCYL [Suspect]
     Route: 048
  4. ELVORINE [Suspect]
     Route: 042
     Dates: start: 20000828, end: 20000916
  5. ZOFRAN [Suspect]
     Route: 048
     Dates: start: 20000828, end: 20000916

REACTIONS (1)
  - MYOSITIS [None]
